FAERS Safety Report 13693188 (Version 1)
Quarter: 2017Q2

REPORT INFORMATION
  Report Type: Spontaneous
  Country: US (occurrence: US)
  Receive Date: 20170627
  Receipt Date: 20170627
  Transmission Date: 20170830
  Serious: Yes (Death)
  Sender: FDA-Public Use
  Company Number: US-ASTRAZENECA-2017SE66043

PATIENT
  Sex: Male

DRUGS (3)
  1. ANGIOMAX [Concomitant]
     Active Substance: BIVALIRUDIN
     Indication: THROMBOLYSIS
     Route: 042
  2. BRILINTA [Suspect]
     Active Substance: TICAGRELOR
     Indication: ACUTE CORONARY SYNDROME
     Dosage: 180.0MG ONCE/SINGLE ADMINISTRATION
     Route: 048
     Dates: start: 20170613
  3. BRILINTA [Suspect]
     Active Substance: TICAGRELOR
     Indication: MYOCARDIAL INFARCTION
     Dosage: 180.0MG ONCE/SINGLE ADMINISTRATION
     Route: 048
     Dates: start: 20170613

REACTIONS (1)
  - Procedural haemorrhage [Fatal]

NARRATIVE: CASE EVENT DATE: 20170613
